FAERS Safety Report 7058609-5 (Version None)
Quarter: 2010Q4

REPORT INFORMATION
  Report Type: 
  Country: None (occurrence: None)
  Receive Date: 20101022
  Receipt Date: 20101014
  Transmission Date: 20110411
  Serious: Yes (Hospitalization)
  Sender: FDA-Public Use
  Company Number: B0664532A

PATIENT
  Age: 27 Year
  Sex: Male

DRUGS (3)
  1. ZANTAC [Suspect]
     Dosage: 150MG PER DAY
     Route: 048
     Dates: start: 20100524, end: 20100607
  2. SELBEX [Concomitant]
     Dosage: 50MG PER DAY
     Route: 048
     Dates: end: 20100607
  3. TAKEPRON [Concomitant]
     Dosage: 30MG PER DAY

REACTIONS (3)
  - BLOOD CREATINE PHOSPHOKINASE INCREASED [None]
  - PAIN IN EXTREMITY [None]
  - RHABDOMYOLYSIS [None]
